FAERS Safety Report 25163812 (Version 1)
Quarter: 2025Q2

REPORT INFORMATION
  Report Type: Spontaneous
  Country: RO (occurrence: RO)
  Receive Date: 20250405
  Receipt Date: 20250405
  Transmission Date: 20250717
  Serious: Yes (Other)
  Sender: VIIV
  Company Number: RO-VIIV HEALTHCARE-RO2025EME036326

PATIENT

DRUGS (2)
  1. ZIDOVUDINE [Suspect]
     Active Substance: ZIDOVUDINE
     Indication: HIV infection
     Dosage: UNK, BID 100MGX6
     Dates: start: 1996, end: 1997
  2. ZALCITABINE [Concomitant]
     Active Substance: ZALCITABINE
     Indication: Product used for unknown indication

REACTIONS (5)
  - Thrombocytopenia [Recovered/Resolved]
  - Hepatitis toxic [Recovered/Resolved]
  - Anaemia [Recovered/Resolved]
  - Parotitis [Recovered/Resolved]
  - Otitis media [Recovered/Resolved]
